FAERS Safety Report 19761832 (Version 1)
Quarter: 2021Q3

REPORT INFORMATION
  Report Type: Spontaneous
  Country: US (occurrence: US)
  Receive Date: 20210829
  Receipt Date: 20210829
  Transmission Date: 20211014
  Serious: Yes (Life-Threatening, Disabling)
  Sender: FDA-Public Use
  Company Number: None

PATIENT
  Age: 38 Year
  Sex: Female
  Weight: 78.75 kg

DRUGS (3)
  1. DAILY MULTIVITAMIN [Concomitant]
     Active Substance: VITAMINS
  2. DAILY PROBIOTIC [Concomitant]
  3. LEVOFLOXACIN 500MG, 1 TABLET BY MOUTH ONCE A DAY [Suspect]
     Active Substance: LEVOFLOXACIN
     Indication: MASTOIDITIS
     Dosage: ?          QUANTITY:1 TABLET(S);?
     Route: 048
     Dates: start: 20210628, end: 20210630

REACTIONS (22)
  - Crying [None]
  - Rash [None]
  - Pain in extremity [None]
  - Tendon pain [None]
  - Abdominal distension [None]
  - Hallucination, visual [None]
  - Pain [None]
  - Insomnia [None]
  - Tremor [None]
  - Drug hypersensitivity [None]
  - Arthropathy [None]
  - Gait inability [None]
  - Angina pectoris [None]
  - Arthralgia [None]
  - Disturbance in attention [None]
  - Cognitive disorder [None]
  - Depersonalisation/derealisation disorder [None]
  - Dyspnoea [None]
  - Palpitations [None]
  - Anxiety [None]
  - Dyspraxia [None]
  - Vision blurred [None]

NARRATIVE: CASE EVENT DATE: 20210628
